FAERS Safety Report 9489606 (Version 1)
Quarter: 2013Q3

REPORT INFORMATION
  Report Type: Spontaneous
  Country: US (occurrence: US)
  Receive Date: 20130829
  Receipt Date: 20130829
  Transmission Date: 20140515
  Serious: Yes (Other)
  Sender: FDA-Public Use
  Company Number: CHPA2013US013523

PATIENT
  Age: 15 Year
  Sex: Female

DRUGS (2)
  1. KERI SHEA BUTTER [Suspect]
     Indication: DRY SKIN
     Dosage: UNK, UNK
     Route: 061
     Dates: start: 201308
  2. FOLIC ACID [Concomitant]
     Indication: WHITE BLOOD CELL COUNT DECREASED
     Dosage: UNK, UNK

REACTIONS (2)
  - Blood potassium decreased [Not Recovered/Not Resolved]
  - Rash [Not Recovered/Not Resolved]
